FAERS Safety Report 7025855-6 (Version None)
Quarter: 2010Q4

REPORT INFORMATION
  Report Type: 
  Country: None (occurrence: None)
  Receive Date: 20101004
  Receipt Date: 20100921
  Transmission Date: 20110411
  Serious: No
  Sender: FDA-Public Use
  Company Number: US-BIOGENIDEC-2010BI025971

PATIENT
  Age: 37 Year
  Sex: Female
  Weight: 79 kg

DRUGS (4)
  1. TYSABRI [Suspect]
     Indication: MULTIPLE SCLEROSIS
     Route: 042
     Dates: start: 20080609, end: 20080707
  2. TYSABRI [Suspect]
     Route: 042
     Dates: start: 20090108
  3. COPAXONE [Concomitant]
     Indication: MULTIPLE SCLEROSIS
  4. BACLOFEN [Concomitant]
     Dates: start: 20090624

REACTIONS (1)
  - CARTILAGE INJURY [None]
